FAERS Safety Report 8378637-7 (Version None)
Quarter: 2012Q2

REPORT INFORMATION
  Report Type: 
  Country: None (occurrence: None)
  Receive Date: 20120522
  Receipt Date: 20120315
  Transmission Date: 20120825
  Serious: No
  Sender: FDA-Public Use
  Company Number: US-ASTRAZENECA-2012SE18356

PATIENT
  Age: 50 Year
  Sex: Female

DRUGS (5)
  1. LANSOPRAZOLE [Concomitant]
  2. NEXIUM [Concomitant]
  3. PANTOPRAZOLE [Concomitant]
  4. OMEPRAZOLE [Suspect]
     Route: 048
  5. ACIPHEX [Concomitant]

REACTIONS (2)
  - ADVERSE EVENT [None]
  - DRUG INEFFECTIVE [None]
